FAERS Safety Report 6030840-7 (Version None)
Quarter: 2009Q1

REPORT INFORMATION
  Report Type: 
  Country: None (occurrence: None)
  Receive Date: 20090106
  Receipt Date: 20081222
  Transmission Date: 20090719
  Serious: Yes (Hospitalization)
  Sender: FDA-Public Use
  Company Number: GXKR2008NL12210

PATIENT
  Sex: Male
  Weight: 1.9 kg

DRUGS (8)
  1. VINCRISTINE [Suspect]
     Dosage: MATERNAL DOSE: 1.5 MG/M2, DAYS 8, 15, 22; MAS. DOSE: 2  MG;  TRANSPLACENTAL
     Route: 064
  2. PREDNISONE [Suspect]
     Dosage: MATERNAL DOSE: 60 MG/M2, DAYS 1-28, TRANSPLACENTAL
     Route: 064
  3. METHOTREXATE [Suspect]
     Dosage: MATERNAL DOSE: 15 MG WEEKLY FOR 3 WEEKS, TRANSPLACENTAL
     Route: 064
  4. CYTARABINE [Suspect]
     Dosage: SEE IMAGE
     Route: 064
  5. CYCLOPHOSPHAMIDE [Suspect]
     Dosage: MATERNAL DOSE:  1000 MG/M2, DAY 8 IN FIRST CYCLE, DAYS 1, 15 IN SECOND CYCLE, TRANSPLACENTAL
     Route: 064
  6. DAUNORUBICIN HCL [Suspect]
     Dosage: MATERNAL DOSE: 45 MG/M2, DAYS 8, 15, 22, TRANSPLACENTAL
     Route: 064
  7. TIOGUANINE (TIOGUANINE) [Suspect]
     Dosage: MATERNAL DOSE: 60 MG/M2, DAYS 1-21, TRANSPLACENTAL
     Route: 064
  8. AMSACRINE (AMSACRINE) [Suspect]
     Dosage: MATERNAL DOSE:  120MG/M2, DAYS 3, 5, 7, TRANSPLACENTAL
     Route: 064

REACTIONS (7)
  - ANAEMIA NEONATAL [None]
  - BONE MARROW FAILURE [None]
  - MATERNAL DRUGS AFFECTING FOETUS [None]
  - NEONATAL DISORDER [None]
  - PREMATURE BABY [None]
  - URINARY TRACT INFECTION ENTEROCOCCAL [None]
  - URINARY TRACT INFECTION NEONATAL [None]
